FAERS Safety Report 5893316-3 (Version None)
Quarter: 2008Q3

REPORT INFORMATION
  Report Type: 
  Country: None (occurrence: None)
  Receive Date: 20080923
  Receipt Date: 20080915
  Transmission Date: 20090109
  Serious: Yes (Other)
  Sender: FDA-Public Use
  Company Number: B0537917A

PATIENT
  Age: 42 Month

DRUGS (4)
  1. LAMOTRIGINE [Suspect]
  2. VALPROIC ACID [Suspect]
  3. PHENYTOIN [Suspect]
  4. LORAZEPAM [Concomitant]

REACTIONS (2)
  - BONE MARROW TOXICITY [None]
  - HEPATOTOXICITY [None]
